FAERS Safety Report 24782263 (Version 1)
Quarter: 2024Q4

REPORT INFORMATION
  Report Type: Spontaneous
  Country: ZA (occurrence: ZA)
  Receive Date: 20241227
  Receipt Date: 20241227
  Transmission Date: 20250114
  Serious: Yes (Other)
  Sender: BAYER HEALTHCARE PHARMACEUTICALS INC.
  Company Number: ZA-BAYER-2024A180326

PATIENT
  Age: 24 Year
  Sex: Female

DRUGS (14)
  1. DIENOGEST\ESTRADIOL VALERATE [Suspect]
     Active Substance: DIENOGEST\ESTRADIOL VALERATE
     Indication: Contraception
     Dosage: 1 DF, QD
     Route: 048
  2. Stilpane [Concomitant]
     Indication: Pain
     Dosage: 2 DF, TID
     Route: 048
  3. Stilpane [Concomitant]
     Indication: Pain
     Dosage: 1-2  CAPSULE(S)  EVERY  EIGHT  HOURS
     Route: 048
  4. RIZATRIPTAN [Concomitant]
     Active Substance: RIZATRIPTAN
     Indication: Migraine
     Dosage: TAKE  ONE WAFER  DAILY IF  NEEDED
     Route: 048
  5. Clamentin [Concomitant]
     Dosage: 1000 MG, BID
     Route: 048
  6. Moxymax [Concomitant]
     Dosage: 2 DF, BID
     Route: 048
  7. INTEFLORA [Concomitant]
     Dosage: 1 DF, BID
     Route: 048
  8. ETORICOXIB [Concomitant]
     Active Substance: ETORICOXIB
     Indication: Pain
     Dosage: 1 DF, OM
     Route: 048
  9. LEVOTHYROXINE [Concomitant]
     Active Substance: LEVOTHYROXINE
     Indication: Hypothyroidism
     Dosage: 1 DF, OM
     Route: 048
  10. PANTOPRAZOLE [Concomitant]
     Active Substance: PANTOPRAZOLE
     Indication: Ulcer
     Dosage: 1 DF, OM
     Route: 048
  11. Tamygen [Concomitant]
     Dosage: 1 DF, BID
     Route: 048
  12. ZITHROGEN [Concomitant]
     Dosage: 1 DF, QD
     Route: 048
  13. PROBIFLORA RX INTESTINAL FLORA CARE [Concomitant]
     Dosage: 1 DF, BID
     Route: 048
  14. PREDNISONE [Concomitant]
     Active Substance: PREDNISONE
     Dosage: 2 DF, BID
     Route: 048

REACTIONS (1)
  - Deafness [None]
